FAERS Safety Report 13172542 (Version 4)
Quarter: 2017Q2

REPORT INFORMATION
  Report Type: Report from Study
  Country: US (occurrence: US)
  Receive Date: 20170131
  Receipt Date: 20170621
  Transmission Date: 20170830
  Serious: Yes (Hospitalization, Other)
  Sender: FDA-Public Use
  Company Number: US-ACTELION-A-NJ2015-125405

PATIENT
  Age: 2 Year
  Sex: Male

DRUGS (7)
  1. ZYRTEC [Concomitant]
     Active Substance: CETIRIZINE HYDROCHLORIDE
     Dosage: 5 ML, QD
     Route: 048
  2. VITAMIN D3 [Concomitant]
     Active Substance: CHOLECALCIFEROL
     Dosage: 2000 IU, Q3 DAYS
     Route: 048
  3. TRACLEER [Suspect]
     Active Substance: BOSENTAN
     Indication: PULMONARY HYPERTENSION
     Dosage: 15.625 MG, Q12HRS
     Route: 048
     Dates: start: 20150817
  4. TRACLEER [Suspect]
     Active Substance: BOSENTAN
     Dosage: 62.5 MG, BID
     Route: 048
     Dates: start: 20150817
  5. SILDENAFIL. [Concomitant]
     Active Substance: SILDENAFIL
     Dosage: 20 MG, TID
     Route: 048
  6. METHADONE [Concomitant]
     Active Substance: METHADONE HYDROCHLORIDE
     Dosage: UNK
     Dates: start: 201701
  7. VALIUM [Concomitant]
     Active Substance: DIAZEPAM
     Dosage: UNK
     Dates: start: 201701

REACTIONS (28)
  - Rhinorrhoea [Unknown]
  - Dehydration [Unknown]
  - Croup infectious [Unknown]
  - Respiratory syncytial virus infection [Recovered/Resolved]
  - Pneumonia aspiration [Unknown]
  - Metabolic acidosis [Unknown]
  - Postoperative respiratory failure [Unknown]
  - Pulmonary arterial pressure increased [Unknown]
  - Disease complication [Unknown]
  - Right ventricular systolic pressure increased [Unknown]
  - Respiratory viral panel [Unknown]
  - Drug withdrawal syndrome [Unknown]
  - Enterovirus test positive [Unknown]
  - Thrombocytopenia [Unknown]
  - Pulmonary hypertension [Unknown]
  - Respiratory tract congestion [Unknown]
  - Hypokalaemia [Unknown]
  - Cough [Unknown]
  - Tinea versicolour [Unknown]
  - Constipation [Unknown]
  - Viral upper respiratory tract infection [Unknown]
  - Bronchiolitis [Recovered/Resolved]
  - Acidosis [Unknown]
  - Postoperative fever [Unknown]
  - Rhinovirus infection [Unknown]
  - Pyrexia [Unknown]
  - Atelectasis [Unknown]
  - Bradycardia [Unknown]

NARRATIVE: CASE EVENT DATE: 20151003
